FAERS Safety Report 4494153-7 (Version None)
Quarter: 2004Q4

REPORT INFORMATION
  Report Type: 
  Country: None (occurrence: None)
  Receive Date: 20041105
  Receipt Date: 20041025
  Transmission Date: 20050328
  Serious: Yes (Disabling)
  Sender: FDA-Public Use
  Company Number: US-MERCK-0410USA03701

PATIENT
  Age: 59 Year
  Sex: Female

DRUGS (6)
  1. VIOXX [Suspect]
     Indication: ARTHRITIS
     Route: 048
     Dates: start: 20040101, end: 20040401
  2. VIOXX [Suspect]
     Indication: PAIN
     Route: 048
     Dates: start: 20040101, end: 20040401
  3. OS-CAL [Concomitant]
     Route: 065
  4. TYLENOL [Concomitant]
     Route: 065
  5. CENTRUM [Concomitant]
     Route: 065
  6. PEPCID [Concomitant]
     Route: 048

REACTIONS (5)
  - DRUG INEFFECTIVE [None]
  - HYPERTENSION [None]
  - HYPOAESTHESIA [None]
  - MUSCULOSKELETAL STIFFNESS [None]
  - PAIN [None]
